FAERS Safety Report 8634683 (Version 2)
Quarter: 2013Q2

REPORT INFORMATION
  Report Type: Report from Study
  Country: JP (occurrence: JP)
  Receive Date: 20120626
  Receipt Date: 20130417
  Transmission Date: 20140414
  Serious: Yes (Hospitalization, Other)
  Sender: FDA-Public Use
  Company Number: PHHY2012JP054038

PATIENT
  Age: 50 Year
  Sex: Female
  Weight: 55 kg

DRUGS (20)
  1. AFINITOR [Suspect]
     Indication: METASTATIC RENAL CELL CARCINOMA
     Dosage: 10 MG, DAILY
     Route: 048
     Dates: start: 20110901, end: 20110913
  2. AFINITOR [Suspect]
     Dosage: 5 MG, DAILY
     Route: 048
     Dates: start: 20110914, end: 20111004
  3. AFINITOR [Suspect]
     Dosage: 10 MG, DAILY
     Route: 048
     Dates: start: 20111005, end: 20111101
  4. AFINITOR [Suspect]
     Dosage: 10 MG, DAILY
     Route: 048
     Dates: start: 20111102, end: 20111130
  5. AFINITOR [Suspect]
     Dosage: 10 MG, DAILY
     Route: 048
     Dates: start: 20111215, end: 20120218
  6. AFINITOR [Suspect]
     Dosage: 10 MG, DAILY
     Route: 048
     Dates: start: 20120301, end: 20120501
  7. PREDONINE [Suspect]
     Dosage: 20 MG, DAILY
     Route: 048
     Dates: start: 20111215, end: 20120110
  8. PREDONINE [Suspect]
     Dosage: 15 MG, DAILY
     Route: 048
     Dates: start: 20120111, end: 20120124
  9. PREDONINE [Suspect]
     Dosage: 10 MG, DAILY
     Route: 048
     Dates: start: 20120125, end: 20120529
  10. LOXONIN [Concomitant]
     Indication: METASTATIC RENAL CELL CARCINOMA
     Dosage: 180 MG, UNK
     Route: 048
     Dates: start: 20110901
  11. MUCOSTA [Concomitant]
     Dosage: 300 MG, UNK
     Route: 048
     Dates: start: 20110901
  12. MEDICON (DEXTROMETHORPHAN HYDROBROMIDE) [Concomitant]
     Indication: METASTATIC RENAL CELL CARCINOMA
     Dosage: 90 MG, UNK
     Route: 048
  13. MUCODYNE [Concomitant]
     Indication: METASTATIC RENAL CELL CARCINOMA
     Dosage: 1500 MG, UNK
     Route: 048
     Dates: start: 20110901
  14. GASPORT [Concomitant]
     Dosage: 20 MG, UNK
     Route: 048
     Dates: start: 20110901
  15. PYDOXAL [Concomitant]
     Indication: PROPHYLAXIS
     Dosage: 60 MG, UNK
     Route: 048
     Dates: start: 20110901, end: 20111014
  16. METHYCOBAL [Concomitant]
     Dosage: 1500 UG, UNK
     Route: 048
     Dates: start: 20110901, end: 20111018
  17. HIRUDOID [Concomitant]
     Dates: start: 20110901, end: 20110921
  18. NERISONA [Concomitant]
     Dates: start: 20110901, end: 20110921
  19. LOCOID [Concomitant]
     Dates: start: 20110922, end: 20110927
  20. TRAMAL [Concomitant]
     Indication: METASTATIC RENAL CELL CARCINOMA
     Route: 048
     Dates: start: 20111215

REACTIONS (5)
  - Septic shock [Recovering/Resolving]
  - Pneumonia [Recovering/Resolving]
  - Decreased appetite [Unknown]
  - Arthralgia [Unknown]
  - Metastases to lung [Unknown]
